FAERS Safety Report 20977346 (Version 1)
Quarter: 2022Q2

REPORT INFORMATION
  Report Type: Spontaneous
  Country: US (occurrence: US)
  Receive Date: 20220617
  Receipt Date: 20220617
  Transmission Date: 20220721
  Serious: No
  Sender: FDA-Public Use
  Company Number: US-009507513-2205USA007505

PATIENT
  Sex: Female

DRUGS (1)
  1. KEYTRUDA [Suspect]
     Active Substance: PEMBROLIZUMAB
     Dosage: 200 MG Q21DAYS
     Route: 042
     Dates: start: 202204

REACTIONS (1)
  - Carbohydrate antigen 15-3 increased [Not Recovered/Not Resolved]

NARRATIVE: CASE EVENT DATE: 20220525
